FAERS Safety Report 18168166 (Version 1)
Quarter: 2020Q3

REPORT INFORMATION
  Report Type: Spontaneous
  Country: CA (occurrence: CA)
  Receive Date: 20200818
  Receipt Date: 20200818
  Transmission Date: 20201103
  Serious: Yes (Other)
  Sender: FDA-Public Use
  Company Number: CA-OTSUKA-2020_019277

PATIENT
  Age: 45 Year
  Sex: Male

DRUGS (7)
  1. LATUDA [Concomitant]
     Active Substance: LURASIDONE HYDROCHLORIDE
     Indication: PRODUCT USED FOR UNKNOWN INDICATION
     Dosage: 40 MG, QD
     Route: 048
  2. ABILIFY [Suspect]
     Active Substance: ARIPIPRAZOLE
     Indication: SCHIZOAFFECTIVE DISORDER BIPOLAR TYPE
     Dosage: 15 MG, QD (5 MG IN MORNING AND 10 MG IN EVENING))
     Route: 048
  3. ABILIFY MAINTENA [Suspect]
     Active Substance: ARIPIPRAZOLE
     Indication: PSYCHOTIC DISORDER
  4. ABILIFY MAINTENA [Suspect]
     Active Substance: ARIPIPRAZOLE
     Indication: SCHIZOAFFECTIVE DISORDER BIPOLAR TYPE
     Dosage: 400 MG, QM
     Route: 030
  5. ABILIFY [Suspect]
     Active Substance: ARIPIPRAZOLE
     Indication: PSYCHOTIC DISORDER
     Dosage: 5 MG, QD
     Route: 048
  6. LORAZEPAM. [Concomitant]
     Active Substance: LORAZEPAM
     Indication: SEDATION
     Dosage: 2 MG, UNK
     Route: 048
  7. LOXAPINE SUCCINATE. [Concomitant]
     Active Substance: LOXAPINE SUCCINATE
     Indication: SEDATION
     Dosage: 5 MG, UNK
     Route: 048

REACTIONS (2)
  - Atrial fibrillation [Recovered/Resolved]
  - Product use in unapproved indication [Unknown]
